FAERS Safety Report 24554233 (Version 1)
Quarter: 2024Q4

REPORT INFORMATION
  Report Type: Spontaneous
  Country: FR (occurrence: FR)
  Receive Date: 20241028
  Receipt Date: 20241028
  Transmission Date: 20250114
  Serious: Yes (Hospitalization, Other)
  Sender: BAXTER
  Company Number: None

PATIENT
  Age: 70 Year
  Sex: Female
  Weight: 88 kg

DRUGS (14)
  1. SODIUM CHLORIDE [Suspect]
     Active Substance: SODIUM CHLORIDE
     Indication: Fluid replacement
     Dosage: (0.9% SODIUM CHLORIDE, SOLUTION FOR INFUSION) 1 LITRE ONCE DAILY
     Route: 042
     Dates: start: 20240711, end: 20240714
  2. SODIUM CHLORIDE [Suspect]
     Active Substance: SODIUM CHLORIDE
     Dosage: ((0.9% SODIUM CHLORIDE, SOLUTION FOR INFUSION) 1 LITRE ONCE DAILY
     Route: 042
     Dates: start: 20240709, end: 20240709
  3. LATANOPROST [Concomitant]
     Active Substance: LATANOPROST
     Dosage: (EYE DROP SOLUTION IN SINGLE-DOSE CONTAINER) 3 DROPS IN 8 HOURS
     Dates: end: 20240717
  4. ASPIRIN\CLOPIDOGREL [Concomitant]
     Active Substance: ASPIRIN\CLOPIDOGREL
     Dosage: (MYLAN 75 MG/100 MG) 75 MG IN ONE DAY
     Route: 048
  5. EZETIMIBE [Concomitant]
     Active Substance: EZETIMIBE
     Dosage: (TEVA) 10 MG ONCE DAILY
     Route: 048
  6. LEVOTHYROXINE [Concomitant]
     Active Substance: LEVOTHYROXINE
     Dosage: (SCORED TABLET) 75 UG ONCE DAILY
     Route: 048
  7. NEBIVOLOL [Concomitant]
     Active Substance: NEBIVOLOL
     Dosage: (NEBIVOLOL VIATRIS 5 MG QUARTER-SCORED TABLET) 5 MG IN 12 HOURS
     Route: 048
  8. ATORVASTATIN [Concomitant]
     Active Substance: ATORVASTATIN
     Dosage: (ATORVASTATIN EG LABO) 40 MG IN 12 HOURS
     Route: 048
  9. Calcidose [Concomitant]
     Dosage: (CALCIDOSE 500, POWDER FOR ORAL SUSPENSION IN SACHETS) 500 MG IN 12 HOURS
     Route: 048
  10. POTASSIUM CHLORIDE [Concomitant]
     Active Substance: POTASSIUM CHLORIDE
     Dosage: 600 MG IN 12 HOURS
     Route: 048
  11. LANSOPRAZOLE [Concomitant]
     Active Substance: LANSOPRAZOLE
     Dosage: (LANSOPRAZOLE VIATRIS) 30 MG ONCE DAILY
     Route: 048
  12. ARANESP [Concomitant]
     Active Substance: DARBEPOETIN ALFA
     Dosage: (SOLUTION FOR INJECTION IN VIAL) 40 MG IN ONE WEEK
     Route: 058
  13. SEVELAMER CARBONATE ARROW [Concomitant]
     Dosage: 2.4 MG ONCE DAILY
     Route: 048
  14. MAGNESIUM [Concomitant]
     Active Substance: MAGNESIUM
     Dosage: 2.5 MG ONCE DAILY
     Route: 048

REACTIONS (1)
  - Acute pulmonary oedema [Recovered/Resolved]

NARRATIVE: CASE EVENT DATE: 20240715
